FAERS Safety Report 7361485-4 (Version None)
Quarter: 2011Q1

REPORT INFORMATION
  Report Type: 
  Country: None (occurrence: None)
  Receive Date: 20110318
  Receipt Date: 20110307
  Transmission Date: 20110831
  Serious: Yes (Hospitalization, Other)
  Sender: FDA-Public Use
  Company Number: PHHY2010US68040

PATIENT
  Sex: Female

DRUGS (2)
  1. GILENYA [Suspect]
     Indication: MULTIPLE SCLEROSIS
     Dosage: 0.5 MG, QD
     Route: 048
     Dates: start: 20101008
  2. TOPROL-XL [Interacting]
     Dosage: 25 MG, BID
     Dates: end: 20101130

REACTIONS (8)
  - VIRAL INFECTION [None]
  - NAUSEA [None]
  - ALOPECIA [None]
  - HEART RATE IRREGULAR [None]
  - VOMITING [None]
  - FALL [None]
  - HEART RATE DECREASED [None]
  - DRUG INTERACTION [None]
